FAERS Safety Report 9404686 (Version 1)
Quarter: 2013Q3

REPORT INFORMATION
  Report Type: Spontaneous
  Country: BE (occurrence: BE)
  Receive Date: 20130717
  Receipt Date: 20130717
  Transmission Date: 20140515
  Serious: Yes (Hospitalization, Other)
  Sender: FDA-Public Use
  Company Number: PHHY2013BE073379

PATIENT
  Sex: Female

DRUGS (11)
  1. FEMARA [Suspect]
     Indication: BREAST CANCER
     Dosage: UNK UKN, UNK
     Route: 048
     Dates: start: 20121205, end: 201306
  2. ALLOPURINOL [Concomitant]
     Dosage: UNK UKN, UNK
  3. COLCHICINE [Concomitant]
     Dosage: UNK UKN, UNK
  4. NOBITEN//NEBIVOLOL [Concomitant]
     Dosage: UNK UKN, UNK
  5. COVERAM [Concomitant]
     Dosage: UNK UKN, UNK
  6. PRAXILENE [Concomitant]
     Dosage: UNK UKN, UNK
  7. UNI DIAMICRON [Concomitant]
     Dosage: UNK UKN, UNK
  8. CRESTOR [Concomitant]
     Dosage: UNK UKN, UNK
  9. PANTOMED//PANTOPRAZOLE SODIUM SESQUIHYDRATE [Concomitant]
     Dosage: UNK UKN, UNK
  10. D-CURE [Concomitant]
     Dosage: UNK UKN, UNK
  11. COLLYRE [Concomitant]
     Dosage: UNK UKN, UNK

REACTIONS (2)
  - Hepatotoxicity [Recovering/Resolving]
  - Hepatitis toxic [Recovering/Resolving]
